FAERS Safety Report 8807924 (Version 3)
Quarter: 2012Q4

REPORT INFORMATION
  Report Type: 
  Country: AU (occurrence: AU)
  Receive Date: 20120925
  Receipt Date: 20121114
  Transmission Date: 20130627
  Serious: Yes (Hospitalization, Other)
  Sender: FDA-Public Use
  Company Number: PHHY2012AU081222

PATIENT
  Age: 43 None
  Sex: Female

DRUGS (4)
  1. CLOZARIL [Suspect]
     Indication: SCHIZOPHRENIA
     Dosage: 275 mg daily at night
     Route: 048
     Dates: start: 19970212
  2. CLOZARIL [Suspect]
     Route: 048
     Dates: start: 2009
  3. FLUVOXAMINE [Concomitant]
     Dosage: 25 mg once daily
  4. MOVICOL [Concomitant]
     Dosage: 1 DF, UNK

REACTIONS (6)
  - Mental disorder [Unknown]
  - Mental impairment [Unknown]
  - Ventricular extrasystoles [Unknown]
  - Troponin T increased [Unknown]
  - Orthostatic hypotension [Unknown]
  - Blood creatine phosphokinase increased [Unknown]
